FAERS Safety Report 13559967 (Version 1)
Quarter: 2017Q2

REPORT INFORMATION
  Report Type: Spontaneous
  Country: US (occurrence: US)
  Receive Date: 20170518
  Receipt Date: 20170518
  Transmission Date: 20170830
  Serious: Yes (Death, Hospitalization, Other)
  Sender: FDA-Public Use
  Company Number: US-AMNEAL PHARMACEUTICALS-2017AMN00618

PATIENT
  Age: 55 Year
  Sex: Male

DRUGS (5)
  1. SUCCINYLCHOLINE [Concomitant]
     Active Substance: SUCCINYLCHOLINE
  2. LIDOCAINE. [Suspect]
     Active Substance: LIDOCAINE
     Indication: ENDOTRACHEAL INTUBATION
     Route: 007
  3. ETOMIDATE. [Concomitant]
     Active Substance: ETOMIDATE
  4. CEFEPIME [Concomitant]
     Active Substance: CEFEPIME HYDROCHLORIDE
     Indication: PNEUMONIA
  5. AZITHROMYCIN ANHYDROUS. [Concomitant]
     Active Substance: AZITHROMYCIN ANHYDROUS
     Indication: PNEUMONIA

REACTIONS (3)
  - Methaemoglobinaemia [Recovered/Resolved]
  - Sepsis [Fatal]
  - Hypoxia [Unknown]
